FAERS Safety Report 16481240 (Version 1)
Quarter: 2019Q2

REPORT INFORMATION
  Report Type: Spontaneous
  Country: US (occurrence: US)
  Receive Date: 20190626
  Receipt Date: 20190626
  Transmission Date: 20190711
  Serious: No
  Sender: FDA-Public Use
  Company Number: US-ASTRAZENECA-2019SE82654

PATIENT
  Sex: Female
  Weight: 113.4 kg

DRUGS (1)
  1. FASENRA [Suspect]
     Active Substance: BENRALIZUMAB
     Indication: ASTHMA
     Dosage: ONCE EVERY 4 WEEKS FOR THE FIRST 3 DOSES AND THEN EVERY 8 WEEKS THEREAFTER
     Route: 058
     Dates: start: 20190523

REACTIONS (1)
  - Gout [Not Recovered/Not Resolved]
